FAERS Safety Report 18218691 (Version 2)
Quarter: 2020Q4

REPORT INFORMATION
  Report Type: Report from Study
  Country: US (occurrence: US)
  Receive Date: 20200901
  Receipt Date: 20201008
  Transmission Date: 20210113
  Serious: Yes (Hospitalization, Other)
  Sender: FDA-Public Use
  Company Number: US-PFIZER INC-2020334121

PATIENT
  Age: 80 Year
  Sex: Female
  Weight: 73.9 kg

DRUGS (6)
  1. TREPROSTINIL SODIUM [Suspect]
     Active Substance: TREPROSTINIL SODIUM
     Indication: PULMONARY ARTERIAL HYPERTENSION
     Dosage: UNK
     Route: 055
     Dates: start: 20121015
  2. TREPROSTINIL SODIUM [Suspect]
     Active Substance: TREPROSTINIL SODIUM
     Dosage: UNK, 4X/DAY (60-120 UG (10-20 BREATHS))
     Route: 055
  3. TREPROSTINIL SODIUM [Suspect]
     Active Substance: TREPROSTINIL SODIUM
     Dosage: UNK
     Route: 055
  4. TREPROSTINIL SODIUM [Suspect]
     Active Substance: TREPROSTINIL SODIUM
     Dosage: UNK
     Route: 055
  5. PREDNISONE. [Interacting]
     Active Substance: PREDNISONE
     Dosage: UNK
     Route: 055
  6. DOXYCYCLINE HYCLATE. [Suspect]
     Active Substance: DOXYCYCLINE HYCLATE
     Dosage: UNK
     Dates: end: 20200918

REACTIONS (12)
  - Drug interaction [Unknown]
  - Pulmonary congestion [Unknown]
  - Cataract [Unknown]
  - Sinus congestion [Unknown]
  - Brain neoplasm [Unknown]
  - Sinusitis [Unknown]
  - Vision blurred [Unknown]
  - Confusional state [Unknown]
  - Heart rate increased [Unknown]
  - Palpitations [Unknown]
  - Blood pressure increased [Unknown]
  - Off label use [Unknown]

NARRATIVE: CASE EVENT DATE: 202008
